FAERS Safety Report 18967849 (Version 2)
Quarter: 2023Q1

REPORT INFORMATION
  Report Type: Spontaneous
  Country: CA (occurrence: CA)
  Receive Date: 20210304
  Receipt Date: 20230204
  Transmission Date: 20230418
  Serious: Yes (Hospitalization, Other)
  Sender: FDA-Public Use
  Company Number: CA-NOVARTISPH-NVSC2021CA044024

PATIENT
  Age: 67 Year
  Sex: Male

DRUGS (19)
  1. GLYCOPYRRONIUM\INDACATEROL [Suspect]
     Active Substance: GLYCOPYRRONIUM\INDACATEROL
     Indication: Product used for unknown indication
     Dosage: UNK
     Route: 065
  2. ASPIRIN [Suspect]
     Active Substance: ASPIRIN
     Indication: Product used for unknown indication
     Dosage: UNK
     Route: 065
  3. LIPITOR [Suspect]
     Active Substance: ATORVASTATIN CALCIUM
     Indication: Product used for unknown indication
     Dosage: UNK
     Route: 065
  4. PREDNISONE [Suspect]
     Active Substance: PREDNISONE
     Indication: Product used for unknown indication
     Dosage: UNK
     Route: 065
  5. ALBUTEROL [Suspect]
     Active Substance: ALBUTEROL
     Indication: Product used for unknown indication
     Dosage: 2 DF, QD
     Route: 065
  6. ALBUTEROL [Suspect]
     Active Substance: ALBUTEROL
     Dosage: UNK, BID
     Route: 065
  7. PANTOPRAZOLE MAGNESIUM [Suspect]
     Active Substance: PANTOPRAZOLE MAGNESIUM
     Indication: Product used for unknown indication
     Dosage: UNK (ENTERIC COATED TABLETS)
     Route: 065
  8. TYLENOL [Suspect]
     Active Substance: ACETAMINOPHEN
     Indication: Product used for unknown indication
     Dosage: UNK
     Route: 065
  9. XELJANZ [Suspect]
     Active Substance: TOFACITINIB CITRATE
     Indication: Rheumatoid arthritis
     Dosage: UNK (31.0 DAYS)
     Route: 065
  10. XELJANZ [Suspect]
     Active Substance: TOFACITINIB CITRATE
     Dosage: UNK (126.0 DAYS)
     Route: 048
  11. XELJANZ [Suspect]
     Active Substance: TOFACITINIB CITRATE
     Dosage: 5 MG, BID
     Route: 048
  12. XELJANZ [Suspect]
     Active Substance: TOFACITINIB CITRATE
     Dosage: 5 MG, QD
     Route: 048
  13. BREO ELLIPTA [Suspect]
     Active Substance: FLUTICASONE FUROATE\VILANTEROL TRIFENATATE
     Indication: Product used for unknown indication
     Dosage: 1 DF, QD
  14. COMBIVENT [Suspect]
     Active Substance: ALBUTEROL SULFATE\IPRATROPIUM BROMIDE
     Indication: Product used for unknown indication
     Dosage: UNK
     Route: 065
  15. FRAGMIN [Suspect]
     Active Substance: DALTEPARIN SODIUM
     Indication: Product used for unknown indication
     Dosage: UNK (FORMULATION: INTRAVENOUS SOLUTION)
     Route: 065
  16. FERROUS SULFATE ANHYDROUS [Suspect]
     Active Substance: FERROUS SULFATE ANHYDROUS
     Indication: Product used for unknown indication
     Dosage: UNK
     Route: 065
  17. PANTOPRAZOLE [Suspect]
     Active Substance: PANTOPRAZOLE
     Indication: Product used for unknown indication
     Dosage: UNK
     Route: 065
  18. VENTOLIN HFA [Suspect]
     Active Substance: ALBUTEROL SULFATE
     Indication: Product used for unknown indication
     Dosage: UNK (METERED-DOSE) (AEROSOL)
     Route: 065
  19. TYLENOL ARTHRITIS PAIN [Suspect]
     Active Substance: ACETAMINOPHEN
     Indication: Product used for unknown indication
     Dosage: UNK (FORMULATION: TABLET (EXTENDED- RELEASE))
     Route: 065

REACTIONS (26)
  - Anaemia [Unknown]
  - Bronchial disorder [Unknown]
  - Bronchial obstruction [Unknown]
  - Bronchitis [Unknown]
  - Cataract [Unknown]
  - Chronic obstructive pulmonary disease [Unknown]
  - Decreased appetite [Unknown]
  - Dyspnoea [Unknown]
  - Feeling cold [Unknown]
  - Feeling hot [Unknown]
  - Haematemesis [Unknown]
  - Lower respiratory tract infection [Unknown]
  - Lung consolidation [Unknown]
  - Lung disorder [Unknown]
  - Lymph node calcification [Unknown]
  - Malaise [Unknown]
  - Pleural effusion [Unknown]
  - Productive cough [Unknown]
  - Pulmonary embolism [Unknown]
  - Rheumatoid arthritis [Unknown]
  - Secretion discharge [Unknown]
  - Weight decreased [Unknown]
  - Wheezing [Unknown]
  - Pyrexia [Unknown]
  - Cough [Unknown]
  - Chest pain [Unknown]
